FAERS Safety Report 6428085-1 (Version None)
Quarter: 2009Q4

REPORT INFORMATION
  Report Type: 
  Country: None (occurrence: None)
  Receive Date: 20091102
  Receipt Date: 20091019
  Transmission Date: 20100525
  Serious: Yes (Hospitalization)
  Sender: FDA-Public Use
  Company Number: 8052826

PATIENT
  Age: 71 Year
  Sex: Male
  Weight: 98 kg

DRUGS (12)
  1. CERTOLIZUMAB PEGOL [Suspect]
     Indication: CROHN'S DISEASE
     Dosage: 400 MG 1/2W SC
     Route: 058
     Dates: start: 20040922, end: 20041020
  2. CERTOLIZUMAB PEGOL [Suspect]
     Indication: CROHN'S DISEASE
     Dosage: 400 MG /M SC
     Route: 058
     Dates: start: 20041117, end: 20050309
  3. CERTOLIZUMAB PEGOL [Suspect]
     Indication: CROHN'S DISEASE
     Dosage: 400 MG /M SC
     Route: 058
     Dates: start: 20090522, end: 20090831
  4. PREDNISONE [Concomitant]
  5. TERAZOSIN HCL [Concomitant]
  6. BEZALIP [Concomitant]
  7. PANTOPRAZOLE [Concomitant]
  8. FOSAMAX [Concomitant]
  9. OXIS /00958001/ [Concomitant]
  10. FLIXOTIDE [Concomitant]
  11. MULTIVITAMIN /00831701/ [Concomitant]
  12. SLOW-K [Concomitant]

REACTIONS (16)
  - CREPITATIONS [None]
  - HAEMOGLOBIN DECREASED [None]
  - HYPOMAGNESAEMIA [None]
  - HYPOTENSION [None]
  - INTERVERTEBRAL DISC PROTRUSION [None]
  - LOBAR PNEUMONIA [None]
  - LOWER RESPIRATORY TRACT INFECTION [None]
  - LUMBAR SPINAL STENOSIS [None]
  - NEUTROPHIL COUNT INCREASED [None]
  - OXYGEN SATURATION DECREASED [None]
  - PNEUMONIA STREPTOCOCCAL [None]
  - PO2 DECREASED [None]
  - PROTEIN TOTAL DECREASED [None]
  - SINUS TACHYCARDIA [None]
  - TACHYPNOEA [None]
  - WHITE BLOOD CELL COUNT INCREASED [None]
